FAERS Safety Report 22120030 (Version 2)
Quarter: 2024Q1

REPORT INFORMATION
  Report Type: Spontaneous
  Country: US (occurrence: None)
  Receive Date: 20230321
  Receipt Date: 20240319
  Transmission Date: 20240410
  Serious: No
  Sender: FDA-Public Use
  Company Number: US-ROCHE-3210084

PATIENT
  Age: 63 Year
  Sex: Female

DRUGS (2)
  1. ERIVEDGE [Suspect]
     Active Substance: VISMODEGIB
     Indication: Basal cell carcinoma
     Dosage: DAILY
     Route: 048
     Dates: start: 202210
  2. ERIVEDGE [Suspect]
     Active Substance: VISMODEGIB
     Dosage: DAILY
     Route: 048
     Dates: start: 202209

REACTIONS (2)
  - Taste disorder [Unknown]
  - Muscle spasms [Unknown]

NARRATIVE: CASE EVENT DATE: 20221022
